FAERS Safety Report 7810382-6 (Version None)
Quarter: 2011Q4

REPORT INFORMATION
  Report Type: 
  Country: None (occurrence: None)
  Receive Date: 20111012
  Receipt Date: 20111003
  Transmission Date: 20120403
  Serious: Yes (Other)
  Sender: FDA-Public Use
  Company Number: FR-ASTRAZENECA-2011SE59423

PATIENT
  Age: 17681 Day
  Sex: Male

DRUGS (1)
  1. NAROPIN [Suspect]
     Indication: RIB FRACTURE
     Route: 041
     Dates: start: 20110915, end: 20110916

REACTIONS (3)
  - PAIN [None]
  - DRUG DOSE OMISSION [None]
  - DRUG ADMINISTRATION ERROR [None]
